FAERS Safety Report 5293238-5 (Version None)
Quarter: 2007Q2

REPORT INFORMATION
  Report Type: 
  Country: None (occurrence: None)
  Receive Date: 20070411
  Receipt Date: 20070405
  Transmission Date: 20071010
  Serious: Yes (Death)
  Sender: FDA-Public Use
  Company Number: FR-AVENTIS-200711754EU

PATIENT
  Age: 54 Year
  Sex: Male

DRUGS (7)
  1. FLUDEX                             /00340101/ [Suspect]
     Route: 048
     Dates: start: 20070305, end: 20070308
  2. EUPRESSYL                          /00631801/ [Suspect]
     Route: 048
     Dates: start: 20070228, end: 20070309
  3. ANTINEOPLASTIC AGENTS [Suspect]
     Route: 048
     Dates: start: 20070213, end: 20070309
  4. AVLOCARDYL [Suspect]
     Route: 048
     Dates: start: 20070308, end: 20070308
  5. TRIATEC                            /00885601/ [Suspect]
     Route: 048
     Dates: start: 20070305, end: 20070308
  6. TRIFLUCAN [Suspect]
     Route: 048
     Dates: start: 20070205, end: 20070308
  7. LOXEN [Concomitant]

REACTIONS (1)
  - PULMONARY OEDEMA [None]
